FAERS Safety Report 8984997 (Version 1)
Quarter: 2012Q4

REPORT INFORMATION
  Report Type: 
  Country: NL (occurrence: NL)
  Receive Date: 20121225
  Receipt Date: 20121225
  Transmission Date: 20130627
  Serious: Yes (Other)
  Sender: FDA-Public Use
  Company Number: NL-AMGEN-NLDSP2012080627

PATIENT
  Age: 68 Year
  Sex: Female

DRUGS (2)
  1. ENBREL [Suspect]
     Indication: RHEUMATOID ARTHRITIS
     Dosage: 50 mg, weekly
     Dates: start: 2009
  2. ALENDRONIC ACID [Concomitant]
     Dosage: UNK

REACTIONS (3)
  - Stress [Unknown]
  - Gastrointestinal disorder [Unknown]
  - Respiratory tract infection [Not Recovered/Not Resolved]
